FAERS Safety Report 6109336-X (Version None)
Quarter: 2009Q1

REPORT INFORMATION
  Report Type: 
  Country: None (occurrence: None)
  Receive Date: 20090306
  Receipt Date: 20090227
  Transmission Date: 20090719
  Serious: Yes (Hospitalization)
  Sender: FDA-Public Use
  Company Number: 2008SP002599

PATIENT
  Age: 57 Year
  Sex: Male

DRUGS (5)
  1. PEG-INTRON [Suspect]
     Indication: HEPATITIS C
     Dosage: 0.5 ML; SC; 0.3 ML; SC
     Route: 058
     Dates: start: 20071114, end: 20080201
  2. PEG-INTRON [Suspect]
     Indication: HEPATITIS C
     Dosage: 0.5 ML; SC; 0.3 ML; SC
     Route: 058
     Dates: start: 20080229
  3. RIBAVIRIN [Suspect]
     Indication: HEPATITIS C
     Dosage: 400 MG; BID; PO; PO
     Route: 048
     Dates: start: 20071114, end: 20080201
  4. RIBAVIRIN [Suspect]
     Indication: HEPATITIS C
     Dosage: 400 MG; BID; PO; PO
     Route: 048
     Dates: start: 20080229
  5. LITHIUM [Concomitant]

REACTIONS (6)
  - CEREBROVASCULAR ACCIDENT [None]
  - DEMENTIA [None]
  - DEPRESSION [None]
  - HYPOPHAGIA [None]
  - MENTAL DISORDER [None]
  - SELF-MEDICATION [None]
